FAERS Safety Report 12336349 (Version 1)
Quarter: 2016Q2

REPORT INFORMATION
  Report Type: Spontaneous
  Country: US (occurrence: US)
  Receive Date: 20160505
  Receipt Date: 20160505
  Transmission Date: 20160815
  Serious: No
  Sender: FDA-Public Use
  Company Number: US-BAYER-2016-086818

PATIENT
  Age: 63 Year
  Sex: Female
  Weight: 79.36 kg

DRUGS (1)
  1. MIRALAX [Suspect]
     Active Substance: POLYETHYLENE GLYCOL 3350
     Indication: CONSTIPATION
     Dosage: 1 DF, QD, DAILY
     Route: 048

REACTIONS (3)
  - Off label use [None]
  - Product use issue [None]
  - Product physical consistency issue [None]
